FAERS Safety Report 9697510 (Version 1)
Quarter: 2013Q4

REPORT INFORMATION
  Report Type: Spontaneous
  Country: US (occurrence: None)
  Receive Date: 20131119
  Receipt Date: 20131119
  Transmission Date: 20140711
  Serious: Yes (Disabling)
  Sender: FDA-Public Use
  Company Number: None

PATIENT
  Age: 58 None
  Sex: Female

DRUGS (8)
  1. PROLIA [Suspect]
     Indication: UPPER LIMB FRACTURE
     Dates: start: 20130930, end: 20130930
  2. PROLIA [Suspect]
     Indication: OSTEOPOROSIS
     Dates: start: 20130930, end: 20130930
  3. ZANTAC [Concomitant]
  4. XANAX [Concomitant]
  5. LOPRESSOR [Concomitant]
  6. VYTORIN [Concomitant]
  7. BENADRYL [Concomitant]
  8. VIVACTIVE [Concomitant]

REACTIONS (8)
  - Vomiting [None]
  - Gastrooesophageal reflux disease [None]
  - Chills [None]
  - Aphasia [None]
  - Sensation of foreign body [None]
  - Aphagia [None]
  - Fluid intake reduced [None]
  - Product taste abnormal [None]
